FAERS Safety Report 21570543 (Version 2)
Quarter: 2022Q4

REPORT INFORMATION
  Report Type: Report from Study
  Country: DK (occurrence: None)
  Receive Date: 20221109
  Receipt Date: 20221114
  Transmission Date: 20230113
  Serious: Yes (Hospitalization)
  Sender: FDA-Public Use
  Company Number: DK-ROCHE-3212464

PATIENT
  Age: 74 Year
  Sex: Male
  Weight: 72.5 kg

DRUGS (10)
  1. INVESTIGATIONAL PRODUCT [Suspect]
     Active Substance: INVESTIGATIONAL PRODUCT
     Indication: Colorectal cancer
     Dosage: DOSE LAST STUDY DRUG ADMIN PRIOR AE IS 35 MGDOSE LAST STUDY DRUG ADMIN PRIOR SAE IS 35 MG
     Route: 042
     Dates: start: 20221101
  2. CIBISATAMAB [Suspect]
     Active Substance: CIBISATAMAB
     Indication: Colorectal cancer
     Dosage: DOSE LAST STUDY DRUG ADMIN PRIOR AE IS 100 MGDOSE LAST STUDY DRUG ADMIN PRIOR SAE IS 100 MG
     Route: 042
     Dates: start: 20221101
  3. OBINUTUZUMAB [Suspect]
     Active Substance: OBINUTUZUMAB
     Indication: Colorectal cancer
     Dosage: DOSE LAST STUDY DRUG ADMIN PRIOR AE IS 1000 MG DOSE LAST STUDY DRUG ADMIN PRIOR SAE IS 1000 MG
     Route: 042
     Dates: start: 20221024
  4. METHYLPREDNISOLONE [Concomitant]
     Active Substance: METHYLPREDNISOLONE
  5. IBUPROFEN [Concomitant]
     Active Substance: IBUPROFEN
  6. BENDROFLUMETHIAZID;KALIUM [Concomitant]
     Indication: Hypertension
     Route: 048
     Dates: start: 1995
  7. AMLODIPINE [Concomitant]
     Active Substance: AMLODIPINE BESYLATE
     Indication: Hypertension
     Route: 048
     Dates: start: 20161121
  8. RAMIPRIL [Concomitant]
     Active Substance: RAMIPRIL
     Indication: Hypertension
     Route: 048
     Dates: start: 1995
  9. LOPERAMIDE [Concomitant]
     Active Substance: LOPERAMIDE
     Indication: Prophylaxis
     Route: 048
     Dates: start: 20220515
  10. ACETAMINOPHEN [Concomitant]
     Active Substance: ACETAMINOPHEN
     Indication: Premedication
     Dosage: NEXT DOSE ON 25/ OCT AND 01/NV/2022
     Dates: start: 20221024

REACTIONS (1)
  - Cytokine release syndrome [Recovered/Resolved]

NARRATIVE: CASE EVENT DATE: 20221102
